FAERS Safety Report 9726268 (Version 2)
Quarter: 2013Q4

REPORT INFORMATION
  Report Type: Spontaneous
  Country: JP (occurrence: JP)
  Receive Date: 20131203
  Receipt Date: 20131203
  Transmission Date: 20140711
  Serious: Yes (Hospitalization)
  Sender: FDA-Public Use
  Company Number: JP-009507513-2008SP013153

PATIENT
  Age: 48 Year
  Sex: Male

DRUGS (3)
  1. PEG-INTRON [Suspect]
     Indication: CHRONIC HEPATITIS C
     Dosage: 120 MICROGRAM, QW
     Route: 058
     Dates: start: 200701, end: 2008
  2. REBETOL [Suspect]
     Indication: CHRONIC HEPATITIS C
     Dosage: 400 MG, BID
     Route: 048
     Dates: start: 200701, end: 2008
  3. THYRADIN [Concomitant]
     Indication: THYROIDITIS CHRONIC
     Dosage: DAILY DOSE UNKNOWN, FOR-POR
     Route: 048

REACTIONS (1)
  - Type 1 diabetes mellitus [Unknown]
